FAERS Safety Report 5214360-5 (Version None)
Quarter: 2007Q1

REPORT INFORMATION
  Report Type: 
  Country: None (occurrence: None)
  Receive Date: 20070122
  Receipt Date: 20070118
  Transmission Date: 20070707
  Serious: Yes (Other)
  Sender: FDA-Public Use
  Company Number: US-GLAXOSMITHKLINE-A0636161A

PATIENT
  Age: 70 Year
  Sex: Male

DRUGS (3)
  1. WELLBUTRIN XL [Suspect]
     Route: 048
  2. ALCOHOL [Suspect]
  3. UNKNOWN MEDICATION [Concomitant]

REACTIONS (3)
  - AGGRESSION [None]
  - ANGER [None]
  - DRUG INTERACTION [None]
